FAERS Safety Report 25427911 (Version 1)
Quarter: 2025Q2

REPORT INFORMATION
  Report Type: Spontaneous
  Country: US (occurrence: US)
  Receive Date: 20250612
  Receipt Date: 20250612
  Transmission Date: 20250717
  Serious: Yes (Other)
  Sender: VERO BIOTECH
  Company Number: US-VEROBIOTECH-2025USVEROSPO00182

PATIENT
  Age: 3 Week

DRUGS (1)
  1. GENOSYL [Suspect]
     Active Substance: NITRIC OXIDE
     Indication: Product used for unknown indication

REACTIONS (2)
  - Oxygen saturation decreased [Unknown]
  - Underdose [Unknown]
